FAERS Safety Report 10896425 (Version 1)
Quarter: 2015Q1

REPORT INFORMATION
  Report Type: Spontaneous
  Country: DE (occurrence: DE)
  Receive Date: 20150309
  Receipt Date: 20150309
  Transmission Date: 20150721
  Serious: Yes (Hospitalization, Other)
  Sender: FDA-Public Use
  Company Number: DE-BRISTOL-MYERS SQUIBB COMPANY-BMS-2015-008490

PATIENT
  Sex: Female
  Weight: 71 kg

DRUGS (1)
  1. YERVOY [Suspect]
     Active Substance: IPILIMUMAB
     Indication: MALIGNANT MELANOMA
     Dosage: 210 MG, QD
     Route: 042
     Dates: start: 20141209

REACTIONS (5)
  - Hyponatraemia [Unknown]
  - Hypophysitis [Recovering/Resolving]
  - Adrenal insufficiency [Unknown]
  - Hypothyroidism [Unknown]
  - Meningitis [Recovering/Resolving]
